FAERS Safety Report 6759433-0 (Version None)
Quarter: 2010Q2

REPORT INFORMATION
  Report Type: 
  Country: None (occurrence: None)
  Receive Date: 20100602
  Receipt Date: 20100521
  Transmission Date: 20101027
  Serious: Yes (Other)
  Sender: FDA-Public Use
  Company Number: 2010AP000991

PATIENT
  Age: 19 Month
  Sex: Male
  Weight: 11.8 kg

DRUGS (2)
  1. ALBUTEROL SULFATE [Suspect]
     Indication: TACHYPNOEA
  2. ASPIRIN [Suspect]

REACTIONS (17)
  - ACCIDENTAL DRUG INTAKE BY CHILD [None]
  - ASTHMA [None]
  - BLOOD CHLORIDE INCREASED [None]
  - CONDITION AGGRAVATED [None]
  - COUGH [None]
  - DRUG TOXICITY [None]
  - HEART RATE INCREASED [None]
  - HUMAN BITE [None]
  - LABORATORY TEST INTERFERENCE [None]
  - METABOLIC ACIDOSIS [None]
  - NO THERAPEUTIC RESPONSE [None]
  - OFF LABEL USE [None]
  - RESPIRATORY DISTRESS [None]
  - RHINORRHOEA [None]
  - UPPER RESPIRATORY TRACT CONGESTION [None]
  - VIRAL UPPER RESPIRATORY TRACT INFECTION [None]
  - WHEEZING [None]
